FAERS Safety Report 19881431 (Version 1)
Quarter: 2021Q3

REPORT INFORMATION
  Report Type: Report from Study
  Country: AT (occurrence: AT)
  Receive Date: 20210924
  Receipt Date: 20210924
  Transmission Date: 20211014
  Serious: Yes (Hospitalization, Other)
  Sender: FDA-Public Use
  Company Number: AT-PFIZER INC-2020268612

PATIENT
  Age: 62 Year
  Sex: Male

DRUGS (3)
  1. INHIXA [Concomitant]
     Active Substance: ENOXAPARIN SODIUM
     Indication: PROPHYLAXIS
     Dosage: UNK
     Route: 065
     Dates: start: 202107, end: 20210711
  2. ENCORAFENIB [Suspect]
     Active Substance: ENCORAFENIB
     Indication: MALIGNANT MELANOMA
     Dosage: 450 MG, 1X PER DAY
     Route: 048
     Dates: start: 20200326
  3. BINIMETINIB [Suspect]
     Active Substance: BINIMETINIB
     Indication: MALIGNANT MELANOMA
     Dosage: 45 MG, 2X PER DAY
     Route: 048
     Dates: start: 20200326

REACTIONS (10)
  - Blood creatine phosphokinase increased [Recovered/Resolved]
  - Fracture [Recovered/Resolved]
  - Fatigue [Recovered/Resolved]
  - Second primary malignancy [Recovered/Resolved]
  - Post procedural infection [Recovered/Resolved]
  - Acute kidney injury [Recovered/Resolved]
  - Vascular pseudoaneurysm [Recovered/Resolved]
  - Renal cell carcinoma [Recovered/Resolved]
  - Hypokalaemia [Recovered/Resolved]
  - Cardiovascular disorder [Recovered/Resolved]

NARRATIVE: CASE EVENT DATE: 20200420
